FAERS Safety Report 19627565 (Version 1)
Quarter: 2021Q3

REPORT INFORMATION
  Report Type: Spontaneous
  Country: RU (occurrence: RU)
  Receive Date: 20210729
  Receipt Date: 20210729
  Transmission Date: 20211014
  Serious: Yes (Life-Threatening)
  Sender: FDA-Public Use
  Company Number: RU-DRREDDYS-SPO/RUS/21/0138207

PATIENT
  Age: 22 Year
  Sex: Female
  Weight: 51 kg

DRUGS (3)
  1. OMEZ [Suspect]
     Active Substance: OMEPRAZOLE
     Indication: COMPLETED SUICIDE
     Dosage: UNSPECIFIED AMOUNT
     Route: 048
     Dates: start: 20210613, end: 20210613
  2. DUSPATALIN [Suspect]
     Active Substance: MEBEVERINE
     Indication: COMPLETED SUICIDE
     Dosage: UNSPECIFIED AMOUNT
     Route: 048
     Dates: start: 20210613
  3. CHLOROPHYLLIPT [Suspect]
     Active Substance: EUCALYPTUS GLOBULUS LEAF
     Indication: COMPLETED SUICIDE
     Dosage: UNSPECIFIED AMOUNT
     Route: 048
     Dates: start: 20210613

REACTIONS (1)
  - Suicide attempt [Recovered/Resolved]

NARRATIVE: CASE EVENT DATE: 20210613
